FAERS Safety Report 4608132-X (Version None)
Quarter: 2005Q2

REPORT INFORMATION
  Report Type: 
  Country: None (occurrence: None)
  Receive Date: 20050301
  Receipt Date: 20040419
  Transmission Date: 20051028
  Serious: Yes (Death)
  Sender: FDA-Public Use
  Company Number: BDI-006001

PATIENT
  Age: 49 Year
  Sex: Female
  Weight: 91 kg

DRUGS (9)
  1. ISOVUE-370 [Suspect]
     Indication: PAIN IN EXTREMITY
     Dosage: 150 ML ONCE IV
     Route: 042
     Dates: start: 20040329, end: 20040329
  2. MULTI-VITAMINS [Concomitant]
  3. PENTOXIFYLLINE [Concomitant]
  4. DIOVANE [Concomitant]
  5. PHOSLO [Concomitant]
  6. MENEST ^MONARCH^` [Concomitant]
  7. ISOSORBIDE [Concomitant]
  8. LISINOPRIL [Concomitant]
  9. METOPROLOL [Concomitant]

REACTIONS (7)
  - ARRHYTHMIA [None]
  - FEELING ABNORMAL [None]
  - FEELING HOT [None]
  - NAUSEA [None]
  - PULSE ABSENT [None]
  - RESPIRATORY ARREST [None]
  - VOMITING [None]
